FAERS Safety Report 8119633-4 (Version None)
Quarter: 2012Q1

REPORT INFORMATION
  Report Type: 
  Country: None (occurrence: None)
  Receive Date: 20120207
  Receipt Date: 20120127
  Transmission Date: 20120608
  Serious: Yes (Other)
  Sender: FDA-Public Use
  Company Number: PHHY2012BR007524

PATIENT
  Sex: Female

DRUGS (1)
  1. DIOVAN HCT [Suspect]
     Indication: HYPERTENSION
     Dosage: 1 DF (320/12.5 MG), UNK
     Route: 048

REACTIONS (6)
  - FALL [None]
  - BLOOD PRESSURE FLUCTUATION [None]
  - MOVEMENT DISORDER [None]
  - DIZZINESS POSTURAL [None]
  - PAIN IN EXTREMITY [None]
  - DYSPEPSIA [None]
